FAERS Safety Report 8208789-0 (Version None)
Quarter: 2012Q1

REPORT INFORMATION
  Report Type: 
  Country: None (occurrence: None)
  Receive Date: 20120314
  Receipt Date: 20120306
  Transmission Date: 20120608
  Serious: Yes (Hospitalization)
  Sender: FDA-Public Use
  Company Number: GR-US-EMD SERONO, INC.-7117343

PATIENT
  Age: 52 Year
  Sex: Female

DRUGS (6)
  1. MAXATRAN [Concomitant]
     Indication: HYPERTENSION
  2. REBIF [Suspect]
     Dates: start: 20120228
  3. THYRORMONE (THYROHORMONE) [Concomitant]
     Indication: THYROIDITIS
  4. TRILEPTAL [Suspect]
     Indication: MULTIPLE SCLEROSIS
  5. FERROUS SULFATE TAB [Concomitant]
     Indication: IRON DEFICIENCY
  6. REBIF [Suspect]
     Indication: MULTIPLE SCLEROSIS
     Dates: start: 20021001, end: 20120227

REACTIONS (4)
  - DRUG DOSE OMISSION [None]
  - BLOOD PRESSURE INCREASED [None]
  - NAUSEA [None]
  - BLOOD SODIUM DECREASED [None]
